FAERS Safety Report 9145260 (Version 1)
Quarter: 2013Q1

REPORT INFORMATION
  Report Type: Spontaneous
  Country: US (occurrence: None)
  Receive Date: 20130226
  Receipt Date: 20130226
  Transmission Date: 20140127
  Serious: Yes (Other)
  Sender: FDA-Public Use
  Company Number: None

PATIENT
  Age: 9 Year
  Sex: Male
  Weight: 34.47 kg

DRUGS (1)
  1. TEGRETOL XR [Suspect]
     Indication: COMPLEX PARTIAL SEIZURES
     Dosage: 100MG 1 TABLET, 2X DAILY, PO
     Route: 048
     Dates: start: 20130209, end: 20130222

REACTIONS (2)
  - Hearing impaired [None]
  - Somnambulism [None]
